FAERS Safety Report 13931053 (Version 1)
Quarter: 2017Q3

REPORT INFORMATION
  Report Type: Spontaneous
  Country: US (occurrence: US)
  Receive Date: 20170902
  Receipt Date: 20170902
  Transmission Date: 20171127
  Serious: Yes (Hospitalization, Other)
  Sender: FDA-Public Use
  Company Number: US-MACLEODS PHARMACEUTICALS US LTD-MAC2017005794

PATIENT

DRUGS (3)
  1. LEVOFLOXACIN 500 MG TABLET [Suspect]
     Active Substance: LEVOFLOXACIN
     Indication: RESPIRATORY SYMPTOM
     Dosage: 2 G, QD (TWO 500MG TABS TWICE PER DAY)
     Route: 048
  2. SALINE [Suspect]
     Active Substance: SODIUM CHLORIDE
     Indication: RESUSCITATION
     Dosage: UNK
     Route: 065
  3. METFORMIN HYDROCHLORIDE. [Suspect]
     Active Substance: METFORMIN HYDROCHLORIDE
     Indication: DIABETES MELLITUS
     Dosage: UNK
     Route: 065

REACTIONS (11)
  - Hypotension [Recovered/Resolved]
  - Tachycardia [Recovered/Resolved]
  - Electrocardiogram QT prolonged [Recovered/Resolved]
  - Delirium [Recovered/Resolved]
  - Toxicity to various agents [Recovered/Resolved]
  - Tremor [Recovered/Resolved]
  - Respiratory symptom [Recovered/Resolved]
  - Overdose [Recovered/Resolved]
  - Hypophagia [Recovered/Resolved]
  - Affective disorder [Recovered/Resolved]
  - Hypoglycaemia [Recovered/Resolved]
